FAERS Safety Report 23256511 (Version 2)
Quarter: 2023Q4

REPORT INFORMATION
  Report Type: Spontaneous
  Country: US (occurrence: US)
  Receive Date: 20231204
  Receipt Date: 20231229
  Transmission Date: 20240110
  Serious: No
  Sender: FDA-Public Use
  Company Number: US-GSK-US2023AMR167534

PATIENT
  Sex: Female

DRUGS (9)
  1. FLOLAN [Suspect]
     Active Substance: EPOPROSTENOL SODIUM
     Indication: Pulmonary arterial hypertension
     Dosage: UNK, 3 NG/KG/MIN
     Dates: start: 19991101
  2. GLYCINE\MANNITOL\SODIUM CHLORIDE [Suspect]
     Active Substance: GLYCINE\MANNITOL\SODIUM CHLORIDE
     Indication: Vehicle solution use
     Dosage: UNK
  3. UPTRAVI [Suspect]
     Active Substance: SELEXIPAG
     Indication: Product used for unknown indication
     Dosage: 1600 UG OR 1600 MCG FOR 3 WEEKS
  4. UPTRAVI [Suspect]
     Active Substance: SELEXIPAG
     Dosage: 1200 UG OR MCG, BID
  5. UPTRAVI [Suspect]
     Active Substance: SELEXIPAG
     Dosage: 1000 UG OR 1000 MCG BID
  6. ADCIRCA [Concomitant]
     Active Substance: TADALAFIL
     Indication: Product used for unknown indication
     Dosage: UNK
  7. LETAIRIS [Concomitant]
     Active Substance: AMBRISENTAN
     Indication: Product used for unknown indication
     Dosage: UNK
  8. VASOTEC [Concomitant]
     Active Substance: ENALAPRIL MALEATE
     Indication: Product used for unknown indication
     Dosage: 5 MG, QD
  9. VASOTEC [Concomitant]
     Active Substance: ENALAPRIL MALEATE
     Dosage: 7.5 MG, QD

REACTIONS (10)
  - Constipation [Unknown]
  - Wheezing [Unknown]
  - Abdominal distension [Unknown]
  - Insomnia [Unknown]
  - Dyspnoea [Unknown]
  - Anxiety [Unknown]
  - Heart rate decreased [Unknown]
  - Catheterisation cardiac [Unknown]
  - Muscle tightness [Unknown]
  - Tension [Unknown]
